FAERS Safety Report 5169735-X (Version None)
Quarter: 2006Q4

REPORT INFORMATION
  Report Type: 
  Country: None (occurrence: None)
  Receive Date: 20061212
  Receipt Date: 20061129
  Transmission Date: 20070319
  Serious: Yes (Hospitalization, Other)
  Sender: FDA-Public Use
  Company Number: PHBS2006FR18479

PATIENT
  Age: 83 Year
  Sex: Female

DRUGS (7)
  1. ANAFRANIL [Suspect]
     Indication: DEPRESSION
     Dosage: 1 DF/DAY
     Route: 048
  2. DITROPAN [Suspect]
     Dosage: 1 DF/DAY
     Route: 048
     Dates: end: 20060419
  3. ZOLOFT [Suspect]
     Route: 048
  4. FEMARA [Suspect]
     Dosage: 1 DF/DAY
     Route: 048
  5. LIPANOR [Suspect]
     Dosage: 1 DF/DAY
     Route: 048
     Dates: end: 20060419
  6. TANAKAN [Suspect]
     Dosage: 2 DF/DAY
     Route: 048
     Dates: end: 20060420
  7. ESOMEPRAZOLE MAGNESIUM [Concomitant]

REACTIONS (13)
  - C-REACTIVE PROTEIN INCREASED [None]
  - CARBOHYDRATE ANTIGEN 15-3 INCREASED [None]
  - CONFUSIONAL STATE [None]
  - DISORIENTATION [None]
  - ECHOGRAPHY ABNORMAL [None]
  - ELECTROENCEPHALOGRAM ABNORMAL [None]
  - FALL [None]
  - HYPERTHERMIA [None]
  - HYPOKALAEMIA [None]
  - INFLAMMATION [None]
  - LYMPHADENOPATHY [None]
  - LYMPHOPENIA [None]
  - METASTASES TO BONE [None]
